FAERS Safety Report 9730869 (Version 2)
Quarter: 2013Q4

REPORT INFORMATION
  Report Type: Spontaneous
  Country: FR (occurrence: FR)
  Receive Date: 20131205
  Receipt Date: 20131209
  Transmission Date: 20140711
  Serious: Yes (Life-Threatening)
  Sender: FDA-Public Use
  Company Number: FR-B.I. PHARMACEUTICALS,INC./RIDGEFIELD-2013-BI-40062FF

PATIENT
  Age: 6 Year
  Sex: Male

DRUGS (1)
  1. CATAPRESSAN [Suspect]
     Indication: PROPHYLAXIS
     Dosage: 0.965 MG
     Route: 048
     Dates: start: 20131113, end: 20131113

REACTIONS (1)
  - Respiratory distress [Recovered/Resolved]
